FAERS Safety Report 16056084 (Version 1)
Quarter: 2019Q1

REPORT INFORMATION
  Report Type: Spontaneous
  Country: GB (occurrence: GB)
  Receive Date: 20190311
  Receipt Date: 20190311
  Transmission Date: 20190418
  Serious: Yes (Other)
  Sender: FDA-Public Use
  Company Number: GB-AUROBINDO-AUR-APL-2019-012245

PATIENT

DRUGS (1)
  1. ARIPIPRAZOLE TABLETS [Suspect]
     Active Substance: ARIPIPRAZOLE
     Indication: SCHIZOPHRENIA
     Dosage: 1 UNK, ONCE A DAY, QD
     Route: 048

REACTIONS (3)
  - Psychotic symptom [Unknown]
  - Somnolence [Unknown]
  - Condition aggravated [Unknown]

NARRATIVE: CASE EVENT DATE: 201901
